FAERS Safety Report 6914926-8 (Version None)
Quarter: 2010Q3

REPORT INFORMATION
  Report Type: 
  Country: None (occurrence: None)
  Receive Date: 20100804
  Receipt Date: 20100804
  Transmission Date: 20110219
  Serious: Yes (Hospitalization)
  Sender: FDA-Public Use
  Company Number: None

PATIENT
  Age: 56 Year
  Sex: Male

DRUGS (2)
  1. METOPROLOL SUCCINATE [Suspect]
     Dosage: 50 MG ONCE
     Dates: start: 20091124, end: 20091124
  2. NIFEDIPINE [Suspect]
     Dosage: 60 MG ONCE
     Dates: start: 20091124, end: 20091125

REACTIONS (1)
  - HYPOTENSION [None]
